FAERS Safety Report 8465452-9 (Version None)
Quarter: 2012Q2

REPORT INFORMATION
  Report Type: 
  Country: None (occurrence: None)
  Receive Date: 20120626
  Receipt Date: 20120621
  Transmission Date: 20120825
  Serious: Yes (Hospitalization)
  Sender: FDA-Public Use
  Company Number: PHHY2012DE041682

PATIENT
  Age: 64 Year
  Sex: Female

DRUGS (3)
  1. ASPIRIN [Concomitant]
     Dosage: UNK UKN, UNK
  2. ISOPROLOL [Concomitant]
     Dosage: UNK UKN, UNK
  3. ZOLEDRONOC ACID [Suspect]
     Indication: OSTEOPOROSIS
     Dosage: 5 MG, UNK
     Route: 042
     Dates: start: 20120514

REACTIONS (5)
  - VISUAL IMPAIRMENT [None]
  - CHILLS [None]
  - CARDIOVASCULAR DISORDER [None]
  - INCORRECT DOSE ADMINISTERED [None]
  - BLOOD PRESSURE DECREASED [None]
